FAERS Safety Report 24277830 (Version 1)
Quarter: 2024Q3

REPORT INFORMATION
  Report Type: Spontaneous
  Country: US (occurrence: US)
  Receive Date: 20240903
  Receipt Date: 20240903
  Transmission Date: 20241017
  Serious: No
  Sender: PERRIGO
  Company Number: US-PERRIGO-23US012769

PATIENT
  Age: 37 Year
  Sex: Female
  Weight: 113.38 kg

DRUGS (6)
  1. TRIAMCINOLONE ACETONIDE [Suspect]
     Active Substance: TRIAMCINOLONE ACETONIDE
     Indication: Sinus congestion
     Dosage: 220 MCG QD
     Route: 045
     Dates: start: 2018
  2. TRIAMCINOLONE ACETONIDE [Suspect]
     Active Substance: TRIAMCINOLONE ACETONIDE
     Indication: Accidental exposure to product
     Dosage: UNKNOWN, ONCE INTO RIGHT NOSTRIL
     Route: 045
     Dates: start: 20231104, end: 20231104
  3. TRIAMCINOLONE ACETONIDE [Suspect]
     Active Substance: TRIAMCINOLONE ACETONIDE
     Dosage: UNKNOWN, ONCE
     Route: 048
     Dates: start: 20231104, end: 20231104
  4. VILAZODONE [Concomitant]
     Active Substance: VILAZODONE
     Indication: Anxiety
     Dosage: UNK
     Route: 065
  5. VILAZODONE [Concomitant]
     Active Substance: VILAZODONE
     Indication: Obsessive-compulsive disorder
  6. VILAZODONE [Concomitant]
     Active Substance: VILAZODONE
     Indication: Depression

REACTIONS (2)
  - Wrong technique in product usage process [Recovered/Resolved]
  - Accidental exposure to product [Recovered/Resolved]

NARRATIVE: CASE EVENT DATE: 20231104
